FAERS Safety Report 6410725-4 (Version None)
Quarter: 2009Q4

REPORT INFORMATION
  Report Type: 
  Country: None (occurrence: None)
  Receive Date: 20091022
  Receipt Date: 20091012
  Transmission Date: 20100525
  Serious: Yes (Other)
  Sender: FDA-Public Use
  Company Number: US-ABBOTT-09P-163-0602096-00

PATIENT
  Sex: Female
  Weight: 86.26 kg

DRUGS (2)
  1. DEPACON [Suspect]
     Indication: CONVULSION
  2. VALPROATE SODIUM [Suspect]
     Indication: CONVULSION

REACTIONS (3)
  - ACTIVITIES OF DAILY LIVING IMPAIRED [None]
  - APALLIC SYNDROME [None]
  - GAIT DISTURBANCE [None]
